FAERS Safety Report 4515151-0 (Version None)
Quarter: 2004Q4

REPORT INFORMATION
  Report Type: 
  Country: None (occurrence: None)
  Receive Date: 20041130
  Receipt Date: 20041130
  Transmission Date: 20050328
  Serious: Yes (Disabling)
  Sender: FDA-Public Use
  Company Number: None

PATIENT
  Age: 45 Year
  Sex: Female
  Weight: 59.8748 kg

DRUGS (1)
  1. ZICAM NASAL GEL   W/ ZINCUM GLUCONICUM 2X     MATRIXX INITIATIVE, INC. [Suspect]
     Indication: NASOPHARYNGITIS
     Dosage: 1         1     NASAL
     Route: 045

REACTIONS (3)
  - AGEUSIA [None]
  - ANOSMIA [None]
  - NASAL DISCOMFORT [None]
